FAERS Safety Report 4694007-7 (Version None)
Quarter: 2005Q2

REPORT INFORMATION
  Report Type: 
  Country: None (occurrence: None)
  Receive Date: 20050616
  Receipt Date: 20050602
  Transmission Date: 20051028
  Serious: Yes (Hospitalization)
  Sender: FDA-Public Use
  Company Number: 050062

PATIENT
  Age: 78 Year
  Sex: Female
  Weight: 48.0813 kg

DRUGS (1)
  1. MIRALAX [Suspect]
     Indication: CONSTIPATION
     Dosage: 17 G, DAILY, PO
     Route: 048
     Dates: start: 20041022, end: 20051201

REACTIONS (3)
  - DIARRHOEA [None]
  - RASH GENERALISED [None]
  - WEIGHT DECREASED [None]
